FAERS Safety Report 17197774 (Version 1)
Quarter: 2019Q4

REPORT INFORMATION
  Report Type: Spontaneous
  Country: US (occurrence: US)
  Receive Date: 20191224
  Receipt Date: 20191224
  Transmission Date: 20200122
  Serious: Yes (Death, Hospitalization)
  Sender: FDA-Public Use
  Company Number: US-TEVA-2019-US-1157490

PATIENT
  Age: 29 Year
  Sex: Male

DRUGS (7)
  1. ATOMOXETINE. [Suspect]
     Active Substance: ATOMOXETINE HYDROCHLORIDE
     Route: 065
  2. PERPHENAZINE. [Suspect]
     Active Substance: PERPHENAZINE
     Route: 065
  3. PAROXETINE. [Suspect]
     Active Substance: PAROXETINE
     Route: 065
  4. HYDROXYZINE [Suspect]
     Active Substance: HYDROXYZINE HYDROCHLORIDE
     Route: 065
  5. CLOMIPRAMINE [Suspect]
     Active Substance: CLOMIPRAMINE
     Route: 065
  6. CLONAZEPAM. [Suspect]
     Active Substance: CLONAZEPAM
     Route: 065
  7. CETIRIZINE [Suspect]
     Active Substance: CETIRIZINE HYDROCHLORIDE
     Route: 065

REACTIONS (12)
  - Bradycardia [Unknown]
  - Hypotension [Unknown]
  - Dyspnoea [Unknown]
  - Completed suicide [Fatal]
  - Unresponsive to stimuli [Unknown]
  - Intentional overdose [Fatal]
  - Cardiac arrest [Unknown]
  - Oxygen saturation decreased [Unknown]
  - Toxicity to various agents [Fatal]
  - Seizure [Unknown]
  - Atrioventricular block [Unknown]
  - Somnolence [Unknown]
